FAERS Safety Report 5300796-0 (Version None)
Quarter: 2007Q2

REPORT INFORMATION
  Report Type: 
  Country: None (occurrence: None)
  Receive Date: 20070418
  Receipt Date: 20070412
  Transmission Date: 20071010
  Serious: Yes (Life-Threatening, Hospitalization, Other)
  Sender: FDA-Public Use
  Company Number: HQWYE166114DEC06

PATIENT
  Sex: Female
  Weight: 51 kg

DRUGS (11)
  1. MYLOTARG [Suspect]
     Indication: ACUTE MYELOID LEUKAEMIA RECURRENT
     Route: 041
     Dates: start: 20060621, end: 20060621
  2. MYLOTARG [Suspect]
     Route: 041
     Dates: start: 20060705, end: 20060705
  3. VFEND [Concomitant]
     Route: 041
     Dates: start: 20060517
  4. MODACIN [Concomitant]
     Indication: PROPHYLAXIS
     Route: 041
     Dates: start: 20060524, end: 20060707
  5. URSO [Concomitant]
     Indication: PROPHYLAXIS
     Route: 048
     Dates: start: 20060621, end: 20060720
  6. MEROPENEM [Concomitant]
     Indication: PROPHYLAXIS
     Route: 041
     Dates: start: 20060708
  7. TARGOCID [Concomitant]
     Indication: PROPHYLAXIS
     Route: 041
     Dates: start: 20060712
  8. BAKTAR [Concomitant]
     Indication: PROPHYLAXIS
     Dosage: UNKNOWN DOSE/DAY
     Route: 048
     Dates: start: 20060623, end: 20060720
  9. POLYMYXIN B SULFATE [Concomitant]
     Indication: PROPHYLAXIS
     Route: 048
     Dates: start: 20060623, end: 20060720
  10. ETOPOSIDE [Concomitant]
     Indication: ACUTE MYELOID LEUKAEMIA RECURRENT
     Dosage: UNKNOWN
     Route: 042
     Dates: start: 20060722, end: 20060723
  11. AMIKACIN SULFATE [Concomitant]
     Indication: PROPHYLAXIS
     Route: 041
     Dates: start: 20060530, end: 20060711

REACTIONS (8)
  - ANAEMIA [None]
  - CONDITION AGGRAVATED [None]
  - HERPES ZOSTER [None]
  - MALAISE [None]
  - PLATELET COUNT DECREASED [None]
  - PLEURAL EFFUSION [None]
  - PNEUMONIA [None]
  - PYREXIA [None]
